FAERS Safety Report 7102508-7 (Version None)
Quarter: 2010Q4

REPORT INFORMATION
  Report Type: 
  Country: None (occurrence: None)
  Receive Date: 20101115
  Receipt Date: 20101103
  Transmission Date: 20110411
  Serious: Yes (Other)
  Sender: FDA-Public Use
  Company Number: PK-ROCHE-739921

PATIENT
  Age: 55 Year
  Sex: Female
  Weight: 81.5 kg

DRUGS (5)
  1. ACTEMRA [Suspect]
     Route: 042
     Dates: start: 20090824
  2. LEFLUNOMIDE [Concomitant]
     Route: 048
     Dates: start: 20050401
  3. HYDROXYCHLOROQUINE [Concomitant]
     Route: 048
  4. PREDNISOLONE [Concomitant]
     Route: 048
  5. SULFASALAZINE [Concomitant]
     Route: 048

REACTIONS (3)
  - DYSPHAGIA [None]
  - MOUTH ULCERATION [None]
  - ORAL CANDIDIASIS [None]
